FAERS Safety Report 13831296 (Version 3)
Quarter: 2017Q3

REPORT INFORMATION
  Report Type: Spontaneous
  Country: US (occurrence: US)
  Receive Date: 20170803
  Receipt Date: 20170929
  Transmission Date: 20171127
  Serious: Yes (Other)
  Sender: FDA-Public Use
  Company Number: US-REGENERON PHARMACEUTICALS, INC.-2017-19551

PATIENT

DRUGS (1)
  1. EYLEA [Suspect]
     Active Substance: AFLIBERCEPT
     Indication: NEOVASCULAR AGE-RELATED MACULAR DEGENERATION
     Dosage: LEFT EYE (OS)
     Route: 031
     Dates: start: 201301

REACTIONS (5)
  - Visual impairment [Recovered/Resolved]
  - Eye haemorrhage [Recovered/Resolved]
  - Drug dose omission [Unknown]
  - Cataract [Recovered/Resolved]
  - Macular degeneration [Recovered/Resolved]

NARRATIVE: CASE EVENT DATE: 201301
